FAERS Safety Report 6145139-8 (Version None)
Quarter: 2009Q2

REPORT INFORMATION
  Report Type: 
  Country: None (occurrence: None)
  Receive Date: 20090402
  Receipt Date: 20090402
  Transmission Date: 20091009
  Serious: Yes (Hospitalization)
  Sender: FDA-Public Use
  Company Number: None

PATIENT
  Sex: Male
  Weight: 69.4003 kg

DRUGS (3)
  1. WELLBUTRIN XL [Suspect]
     Indication: BEREAVEMENT REACTION
     Dosage: 450MG DAILY ORAL
     Route: 048
     Dates: start: 20080813, end: 20080823
  2. WELLBUTRIN XL [Suspect]
     Indication: DISEASE RECURRENCE
     Dosage: 450MG DAILY ORAL
     Route: 048
     Dates: start: 20080813, end: 20080823
  3. WELLBUTRIN XL [Suspect]
     Indication: MAJOR DEPRESSION
     Dosage: 450MG DAILY ORAL
     Route: 048
     Dates: start: 20080813, end: 20080823

REACTIONS (5)
  - ANXIETY [None]
  - DIZZINESS [None]
  - PRODUCT QUALITY ISSUE [None]
  - TACHYCARDIA [None]
  - TREMOR [None]
